FAERS Safety Report 8050306-2 (Version None)
Quarter: 2012Q1

REPORT INFORMATION
  Report Type: 
  Country: None (occurrence: None)
  Receive Date: 20120111
  Receipt Date: 20110526
  Transmission Date: 20120608
  Serious: Yes (Life-Threatening, Hospitalization, Other)
  Sender: FDA-Public Use
  Company Number: 2011-03141

PATIENT
  Age: 24 Year
  Sex: Female
  Weight: 38 kg

DRUGS (1)
  1. TUBERSOL [Suspect]
     Indication: TUBERCULIN TEST
     Dosage: I.D.
     Route: 023
     Dates: start: 20110523, end: 20110523

REACTIONS (11)
  - DIZZINESS [None]
  - GAIT DISTURBANCE [None]
  - HYPERHIDROSIS [None]
  - BRADYCARDIA [None]
  - HYPOPNOEA [None]
  - SYNCOPE [None]
  - PALLOR [None]
  - CYANOSIS [None]
  - DEHYDRATION [None]
  - LETHARGY [None]
  - HYPOTENSION [None]
